FAERS Safety Report 4289209-8 (Version None)
Quarter: 2004Q1

REPORT INFORMATION
  Report Type: 
  Country: None (occurrence: None)
  Receive Date: 20040206
  Receipt Date: 20040129
  Transmission Date: 20041129
  Serious: Yes (Other)
  Sender: FDA-Public Use
  Company Number: 2003124350

PATIENT
  Age: 62 Year
  Sex: Male

DRUGS (3)
  1. DILANTIN KAPSEAL [Suspect]
     Indication: CONVULSION
     Dosage: ORAL
     Route: 048
  2. DILANTIN KAPSEAL [Suspect]
     Dates: start: 20050831
  3. FOLIC ACID [Concomitant]

REACTIONS (3)
  - CONVULSION [None]
  - DRUG LEVEL BELOW THERAPEUTIC [None]
  - PHARMACEUTICAL PRODUCT COMPLAINT [None]
